FAERS Safety Report 7272394-3 (Version None)
Quarter: 2011Q1

REPORT INFORMATION
  Report Type: 
  Country: None (occurrence: None)
  Receive Date: 20110203
  Receipt Date: 20110128
  Transmission Date: 20110831
  Serious: Yes (Hospitalization)
  Sender: FDA-Public Use
  Company Number: US-SANOFI-AVENTIS-2011SA006422

PATIENT
  Sex: Male

DRUGS (4)
  1. MULTAQ [Suspect]
     Route: 048
  2. COUMADIN [Concomitant]
  3. LANOXIN [Concomitant]
  4. VALSARTAN [Concomitant]

REACTIONS (4)
  - BLOOD GLUCOSE INCREASED [None]
  - JAUNDICE [None]
  - FATIGUE [None]
  - LIVER FUNCTION TEST ABNORMAL [None]
